FAERS Safety Report 4715158-4 (Version None)
Quarter: 2005Q3

REPORT INFORMATION
  Report Type: 
  Country: None (occurrence: None)
  Receive Date: 20050715
  Receipt Date: 20050709
  Transmission Date: 20060218
  Serious: Yes (Death)
  Sender: FDA-Public Use
  Company Number: GB-GLAXOSMITHKLINE-B0387220A

PATIENT
  Age: 13 Year
  Sex: Male
  Weight: 40 kg

DRUGS (2)
  1. LAMOTRIGINE [Suspect]
     Indication: CONVULSION
     Route: 048
     Dates: start: 20011204
  2. TOPIRAMATE [Suspect]
     Indication: CONVULSION
     Route: 048
     Dates: start: 20050215

REACTIONS (2)
  - MYOCARDITIS [None]
  - SUDDEN DEATH [None]
